FAERS Safety Report 25522428 (Version 1)
Quarter: 2025Q3

REPORT INFORMATION
  Report Type: Spontaneous
  Country: EU (occurrence: EU)
  Receive Date: 20250707
  Receipt Date: 20250707
  Transmission Date: 20251021
  Serious: No
  Sender: ALKEM
  Company Number: EU-ALKEM LABORATORIES LIMITED-FR-ALKEM-2023-01268

PATIENT
  Sex: Female

DRUGS (6)
  1. DRONABINOL [Suspect]
     Active Substance: DRONABINOL
     Indication: Neuralgia
     Route: 065
     Dates: start: 20221021
  2. DRONABINOL [Suspect]
     Active Substance: DRONABINOL
     Route: 065
     Dates: start: 20241004
  3. DRONABINOL [Suspect]
     Active Substance: DRONABINOL
     Route: 065
     Dates: end: 20241004
  4. ALPRAZOLAM [Concomitant]
     Active Substance: ALPRAZOLAM
     Indication: Depression
     Dosage: UNK, TID (0.5, 3 DAILY)
     Route: 065
  5. FLUOXETINE [Concomitant]
     Active Substance: FLUOXETINE HYDROCHLORIDE
     Indication: Depression
     Dosage: UNK, QD (20, 1 DAILY)
     Route: 065
  6. VIMPAT [Concomitant]
     Active Substance: LACOSAMIDE
     Indication: Epilepsy
     Dosage: UNK, BID (200, 2 DAILY)
     Route: 065

REACTIONS (4)
  - Fall [Unknown]
  - Dizziness [Unknown]
  - Off label use [Unknown]
  - Prescribed underdose [Unknown]
